FAERS Safety Report 6739803-7 (Version None)
Quarter: 2010Q2

REPORT INFORMATION
  Report Type: 
  Country: None (occurrence: None)
  Receive Date: 20100525
  Receipt Date: 20100512
  Transmission Date: 20101027
  Serious: Yes (Other)
  Sender: FDA-Public Use
  Company Number: PHHY2010VE31205

PATIENT
  Sex: Female

DRUGS (7)
  1. TASIGNA [Suspect]
     Indication: CHRONIC MYELOID LEUKAEMIA
     Dosage: 600MG (400MG IN THE MORNING (6AM) AND 200MG IN THE EVENING 6PM)
     Dates: start: 20081208
  2. CONCOR [Concomitant]
     Indication: CARDIAC DISCOMFORT
     Dosage: 5 MG
     Route: 048
     Dates: start: 20080701
  3. LOSARTAN POTASSIUM [Concomitant]
     Indication: HYPERTENSION
     Dosage: 100 MG ONCE A DAY
     Route: 048
     Dates: start: 20100101
  4. AMLODIPINE BESYLATE [Concomitant]
     Indication: HYPERTENSION
     Dosage: 5 MG ONCE A DAY
     Route: 048
     Dates: start: 20100101
  5. LEVOTHYROXINE SODIUM [Concomitant]
     Indication: THYROID DISORDER
     Dosage: 1 MG ONCE A DAY (AT 11PM)
     Route: 048
  6. ACETYLSALICYLIC ACID [Concomitant]
     Indication: CARDIAC DISCOMFORT
     Dosage: 81 MG ONCE A DAY
     Route: 048
     Dates: start: 20070901
  7. MACRODANTINA [Concomitant]
     Indication: URINARY TRACT INFECTION
     Dosage: 50 MG
     Route: 048

REACTIONS (5)
  - CYSTITIS HAEMORRHAGIC [None]
  - DRY EYE [None]
  - EYE IRRITATION [None]
  - EYE PRURITUS [None]
  - RASH [None]
